FAERS Safety Report 5326367-8 (Version None)
Quarter: 2007Q2

REPORT INFORMATION
  Report Type: 
  Country: None (occurrence: None)
  Receive Date: 20070516
  Receipt Date: 20070510
  Transmission Date: 20071010
  Serious: Yes (Other)
  Sender: FDA-Public Use
  Company Number: B0470358A

PATIENT
  Age: 67 Year
  Sex: Male

DRUGS (4)
  1. AVANDAMET [Suspect]
     Dosage: 4MG UNKNOWN
     Route: 048
     Dates: start: 20060301
  2. RAMIPRIL [Concomitant]
  3. GLIBENCLAMIDE [Concomitant]
  4. SIMVASTATIN [Concomitant]

REACTIONS (4)
  - COUGH [None]
  - DYSPNOEA [None]
  - INFLUENZA LIKE ILLNESS [None]
  - PNEUMONIA [None]
